FAERS Safety Report 15824595 (Version 1)
Quarter: 2019Q1

REPORT INFORMATION
  Report Type: Spontaneous
  Country: GB (occurrence: GB)
  Receive Date: 20190115
  Receipt Date: 20190115
  Transmission Date: 20190417
  Serious: Yes (Hospitalization, Other)
  Sender: FDA-Public Use
  Company Number: GB-AXELLIA-002163

PATIENT
  Age: 67 Year
  Sex: Male
  Weight: 82.6 kg

DRUGS (13)
  1. DOCUSATE [Concomitant]
     Active Substance: DOCUSATE
  2. SPIRONOLACTONE. [Concomitant]
     Active Substance: SPIRONOLACTONE
  3. CIPROFLOXACIN. [Concomitant]
     Active Substance: CIPROFLOXACIN
  4. CLOPIDOGREL [Concomitant]
     Active Substance: CLOPIDOGREL BISULFATE
  5. AMLODIPINE [Concomitant]
     Active Substance: AMLODIPINE BESYLATE
  6. FUROSEMIDE. [Concomitant]
     Active Substance: FUROSEMIDE
  7. DAPTOMYCIN. [Suspect]
     Active Substance: DAPTOMYCIN
     Indication: HIP ARTHROPLASTY
     Route: 042
     Dates: start: 20181019, end: 20181101
  8. LANSOPRAZOLE. [Concomitant]
     Active Substance: LANSOPRAZOLE
  9. ANUSOL NOS [Concomitant]
     Active Substance: BALSAM PERU\BENZYL BENZOATE\BISMUTH HYDROXIDE\BISMUTH SUBGALLATE\HYDROCORTISONE ACETATE\ZINC OXIDE
  10. BISOPROLOL [Concomitant]
     Active Substance: BISOPROLOL
  11. RAMIPRIL. [Concomitant]
     Active Substance: RAMIPRIL
  12. EZETIMIBE. [Concomitant]
     Active Substance: EZETIMIBE
  13. FERROUS FUMARATE [Concomitant]
     Active Substance: FERROUS FUMARATE

REACTIONS (3)
  - Pneumocystis jirovecii pneumonia [Recovered/Resolved]
  - Off label use [Unknown]
  - Circulatory collapse [Unknown]

NARRATIVE: CASE EVENT DATE: 20181019
